FAERS Safety Report 8415928-5 (Version None)
Quarter: 2012Q2

REPORT INFORMATION
  Report Type: 
  Country: None (occurrence: None)
  Receive Date: 20120606
  Receipt Date: 20120530
  Transmission Date: 20120825
  Serious: Yes (Other)
  Sender: FDA-Public Use
  Company Number: US-UCBSA-058389

PATIENT
  Age: 40 Year
  Sex: Female

DRUGS (2)
  1. VIMPAT [Suspect]
  2. VIMPAT [Suspect]
     Dosage: LOADED WITH 300 MG

REACTIONS (2)
  - SINUS BRADYCARDIA [None]
  - DYSPNOEA [None]
